FAERS Safety Report 11599456 (Version 1)
Quarter: 2015Q3

REPORT INFORMATION
  Report Type: Spontaneous
  Country: US (occurrence: US)
  Receive Date: 20150916
  Receipt Date: 20150916
  Transmission Date: 20151125
  Serious: No
  Sender: FDA-Public Use
  Company Number: US-ELI_LILLY_AND_COMPANY-US200711000592

PATIENT
  Age: 82 Year
  Sex: Female

DRUGS (4)
  1. PREVACID [Concomitant]
     Active Substance: LANSOPRAZOLE
  2. FORTEO [Suspect]
     Active Substance: TERIPARATIDE
     Indication: OSTEOPOROSIS
     Dosage: UNK, EACH EVENING
     Dates: start: 20071031, end: 20071119
  3. EVISTA [Concomitant]
     Active Substance: RALOXIFENE HYDROCHLORIDE
  4. CELEBREX [Concomitant]
     Active Substance: CELECOXIB

REACTIONS (5)
  - Carotid artery stenosis [Not Recovered/Not Resolved]
  - Injection site erythema [Recovered/Resolved]
  - Blindness transient [Recovered/Resolved]
  - Arthralgia [Recovering/Resolving]
  - Pain in extremity [Recovering/Resolving]

NARRATIVE: CASE EVENT DATE: 20071031
